FAERS Safety Report 8817379 (Version 1)
Quarter: 2012Q4

REPORT INFORMATION
  Report Type: 
  Country: IT (occurrence: IT)
  Receive Date: 20121004
  Receipt Date: 20121004
  Transmission Date: 20130627
  Serious: Yes (Life-Threatening, Hospitalization)
  Sender: FDA-Public Use
  Company Number: PHHY2012IT085888

PATIENT
  Age: 76 Year
  Sex: Female

DRUGS (7)
  1. BISOPROLOL [Suspect]
     Indication: HYPERTENSION
     Dosage: 1.25 mg daily
     Route: 048
     Dates: start: 20120904, end: 20120905
  2. FUROSEMIDE [Suspect]
     Indication: CARDIAC FAILURE
     Dosage: 240 mg daily
     Route: 042
     Dates: start: 20120904, end: 20120905
  3. LASIX [Suspect]
     Indication: CARDIAC FAILURE
     Dosage: 2 DF, UNK
     Route: 042
     Dates: start: 20120824, end: 20120903
  4. KCL-RETARD [Concomitant]
     Dates: start: 20120904, end: 20120905
  5. CLEXANE [Concomitant]
  6. MINIAS [Concomitant]
     Indication: DEPRESSION
     Route: 048
  7. ELOPRAM [Concomitant]

REACTIONS (2)
  - Cardiac arrest [Recovered/Resolved]
  - Hypokalaemia [Recovered/Resolved]
